FAERS Safety Report 8138713 (Version 2)
Quarter: 2014Q2

REPORT INFORMATION
  Report Type: Report from Study
  Country: CA (occurrence: CA)
  Receive Date: 20110915
  Receipt Date: 20140523
  Transmission Date: 20141212
  Serious: Yes (Hospitalization, Other)
  Sender: FDA-Public Use
  Company Number: CA-BRISTOL-MYERS SQUIBB COMPANY-13688759

PATIENT
  Age: 44 Year
  Sex: Male

DRUGS (8)
  1. BELATACEPT [Suspect]
     Indication: RENAL TRANSPLANT
     Route: 042
     Dates: start: 20061108, end: 20070201
  2. MYCOPHENOLATE MOFETIL [Suspect]
     Dosage: INTERRUPTED 16FEB07; CURRENT MEDICATION:500MG/D; AS OF 26JAN10 750MG/D
     Dates: start: 20061108
  3. PREDNISONE [Suspect]
     Dosage: CURRENT MEDICATION:40MG/D; AS OF 26JAN10 10MG/D; 7.5MG/D.
     Dates: start: 20061108
  4. METOPROLOL [Concomitant]
     Indication: HYPERTENSION
     Route: 048
     Dates: start: 20061111
  5. ESOMEPRAZOLE [Concomitant]
     Dates: start: 20061212
  6. AMLODIPINE BESYLATE [Concomitant]
     Indication: HYPERTENSION
     Route: 048
     Dates: start: 20061208
  7. SULFAMETHOXAZOLE + TRIMETHOPRIM [Concomitant]
     Route: 048
     Dates: start: 20061109
  8. TACROLIMUS [Concomitant]

REACTIONS (1)
  - Lymphoma [Recovered/Resolved]
